FAERS Safety Report 8607999-8 (Version None)
Quarter: 2012Q3

REPORT INFORMATION
  Report Type: 
  Country: None (occurrence: None)
  Receive Date: 20120807
  Receipt Date: 20120730
  Transmission Date: 20120928
  Serious: Yes (Hospitalization)
  Sender: FDA-Public Use
  Company Number: DSA_58751_2012

PATIENT
  Age: 18 Year
  Sex: Female

DRUGS (1)
  1. BUPROPION HCL [Suspect]
     Indication: PRODUCT USED FOR UNKNOWN INDICATION
     Dosage: (2.85 G X 1)

REACTIONS (12)
  - DISORIENTATION [None]
  - SINUS TACHYCARDIA [None]
  - GRAND MAL CONVULSION [None]
  - OVERDOSE [None]
  - UNRESPONSIVE TO STIMULI [None]
  - VENTRICULAR TACHYCARDIA [None]
  - ELECTROCARDIOGRAM QT PROLONGED [None]
  - METABOLIC ACIDOSIS [None]
  - BRADYCARDIA [None]
  - BLOOD PRESSURE DECREASED [None]
  - MENTAL STATUS CHANGES [None]
  - PULSE ABSENT [None]
